FAERS Safety Report 5003916-0 (Version None)
Quarter: 2006Q2

REPORT INFORMATION
  Report Type: 
  Country: None (occurrence: None)
  Receive Date: 20060517
  Receipt Date: 20060511
  Transmission Date: 20061013
  Serious: Yes (Other)
  Sender: FDA-Public Use
  Company Number: PHEH2006US06219

PATIENT
  Age: 70 Year
  Sex: Female

DRUGS (1)
  1. AREDIA [Suspect]
     Indication: MULTIPLE MYELOMA
     Dosage: 90MG Q4WKS-2 DOSES
     Dates: start: 20001204, end: 20010110

REACTIONS (6)
  - CELLULITIS [None]
  - DEEP VEIN THROMBOSIS [None]
  - ERYTHEMA [None]
  - INFUSION SITE PAIN [None]
  - INJECTION SITE PHLEBITIS [None]
  - PYREXIA [None]
